FAERS Safety Report 7772752-4 (Version None)
Quarter: 2011Q3

REPORT INFORMATION
  Report Type: 
  Country: None (occurrence: None)
  Receive Date: 20110922
  Receipt Date: 20101108
  Transmission Date: 20111222
  Serious: No
  Sender: FDA-Public Use
  Company Number: US-ASTRAZENECA-2010SE39051

PATIENT
  Age: 36 Year
  Sex: Female
  Weight: 148.8 kg

DRUGS (9)
  1. VISTARIL [Concomitant]
     Indication: ANXIETY
     Dosage: ONE IN AM TWO IN PM
  2. IBUPROFEN [Concomitant]
     Indication: MIGRAINE
  3. DEPAKOTE ER [Concomitant]
     Indication: CONVULSION
  4. SEROQUEL XR [Suspect]
     Indication: BIPOLAR DISORDER
     Route: 048
  5. DEPAKOTE ER [Concomitant]
     Indication: MOOD SWINGS
  6. SEROQUEL XR [Suspect]
     Indication: ANXIETY
     Route: 048
  7. SEROQUEL XR [Suspect]
     Indication: POST-TRAUMATIC STRESS DISORDER
     Route: 048
  8. ZOLOFT [Concomitant]
     Indication: DEPRESSION
  9. IBUPROFEN [Concomitant]
     Indication: SWELLING

REACTIONS (4)
  - ANGER [None]
  - MANIA [None]
  - MOOD SWINGS [None]
  - DRUG DOSE OMISSION [None]
